FAERS Safety Report 5685001-8 (Version None)
Quarter: 2008Q1

REPORT INFORMATION
  Report Type: 
  Country: None (occurrence: None)
  Receive Date: 20080328
  Receipt Date: 20080325
  Transmission Date: 20080703
  Serious: Yes (Other)
  Sender: FDA-Public Use
  Company Number: US-ASTRAZENECA-2008UW03354

PATIENT
  Age: 59 Year
  Sex: Female
  Weight: 80.7 kg

DRUGS (12)
  1. NEXIUM [Suspect]
     Indication: GASTROOESOPHAGEAL REFLUX DISEASE
     Route: 048
     Dates: start: 20060101, end: 20060101
  2. ZYRTEC-D 12 HOUR [Concomitant]
  3. HYDROCHLOROTHIAZIDE [Concomitant]
  4. LEXAPRO [Concomitant]
     Indication: ANXIETY
  5. LORAZEPAM [Concomitant]
  6. FLOVENT [Concomitant]
  7. ALBUTEROL [Concomitant]
     Route: 055
  8. VERAPAMIL [Concomitant]
  9. LEVOXYL [Concomitant]
  10. RELAPAX [Concomitant]
     Indication: MIGRAINE
  11. VITAMINS [Concomitant]
     Indication: HOT FLUSH
  12. HERBS [Concomitant]
     Indication: HOT FLUSH

REACTIONS (5)
  - DIABETES MELLITUS [None]
  - IMMUNE SYSTEM DISORDER [None]
  - PANCREATIC DISORDER [None]
  - RASH PRURITIC [None]
  - TOOTH LOSS [None]
